FAERS Safety Report 4367331-5 (Version None)
Quarter: 2004Q2

REPORT INFORMATION
  Report Type: 
  Country: None (occurrence: None)
  Receive Date: 20040528
  Receipt Date: 20040528
  Transmission Date: 20050107
  Serious: No
  Sender: FDA-Public Use
  Company Number: None

PATIENT
  Age: 78 Year
  Sex: Male

DRUGS (1)
  1. ZYVOX [Suspect]
     Indication: OSTEOMYELITIS
     Dosage: TABLET TWICE DAILY ORAL
     Route: 048
     Dates: start: 20040429, end: 20040525

REACTIONS (1)
  - PLATELET COUNT DECREASED [None]
